FAERS Safety Report 7984146-7 (Version None)
Quarter: 2011Q4

REPORT INFORMATION
  Report Type: 
  Country: None (occurrence: None)
  Receive Date: 20111216
  Receipt Date: 20111212
  Transmission Date: 20120403
  Serious: Yes (Other)
  Sender: FDA-Public Use
  Company Number: US-PFIZER INC-2011302708

PATIENT
  Age: 86 Year
  Sex: Female

DRUGS (2)
  1. DIOVAN [Concomitant]
     Indication: BLOOD PRESSURE ABNORMAL
     Dosage: UNK
  2. ZYVOX [Suspect]
     Indication: INFECTION
     Dosage: UNK
     Dates: start: 20111208

REACTIONS (3)
  - HYPERTENSION [None]
  - MALAISE [None]
  - INSOMNIA [None]
